FAERS Safety Report 17270456 (Version 1)
Quarter: 2020Q1

REPORT INFORMATION
  Report Type: Report from Study
  Country: CO (occurrence: CO)
  Receive Date: 20200114
  Receipt Date: 20200114
  Transmission Date: 20200409
  Serious: Yes (Hospitalization)
  Sender: FDA-Public Use
  Company Number: CO-JNJFOC-20191131621

PATIENT
  Sex: Male

DRUGS (1)
  1. STELARA [Suspect]
     Active Substance: USTEKINUMAB
     Indication: PSORIASIS
     Route: 058

REACTIONS (6)
  - Product dose omission [Unknown]
  - Inflammation [Unknown]
  - Chikungunya virus infection [Unknown]
  - Pyrexia [Unknown]
  - Psoriasis [Unknown]
  - Headache [Unknown]
